FAERS Safety Report 9341459 (Version 1)
Quarter: 2013Q2

REPORT INFORMATION
  Report Type: Spontaneous
  Country: US (occurrence: US)
  Receive Date: 20130611
  Receipt Date: 20130611
  Transmission Date: 20140414
  Serious: Yes (Hospitalization)
  Sender: FDA-Public Use
  Company Number: US-ELI_LILLY_AND_COMPANY-US201306000703

PATIENT
  Sex: Female

DRUGS (16)
  1. FORTEO [Suspect]
     Indication: OSTEOPOROSIS
     Dosage: UNK, QD
     Route: 065
     Dates: start: 2010, end: 2010
  2. FORTEO [Suspect]
     Dosage: UNK, QD
     Route: 065
     Dates: start: 20130603
  3. METRONIDAZOLE [Concomitant]
     Dosage: UNK, PRN
  4. METHOTREXATE [Concomitant]
     Dosage: 6 MG, WEEKLY (1/W)
  5. FOLIC ACID [Concomitant]
     Dosage: UNK, QD
  6. OMEPRAZOLE [Concomitant]
     Dosage: 20 MG, QD
  7. PRAVASTATIN [Concomitant]
     Dosage: 40 MG, QD
  8. ALLEGRA [Concomitant]
     Dosage: 1 DF, PRN
  9. TYLENOL                                 /SCH/ [Concomitant]
     Dosage: UNK, PRN
  10. FISH OIL [Concomitant]
     Dosage: UNK, QD
  11. CALCIUM VITAMIN D [Concomitant]
     Dosage: 1200 MG, QD
  12. ESTER-C                            /00008001/ [Concomitant]
     Dosage: UNK, QD
  13. CENTRUM SILVER [Concomitant]
     Dosage: UNK, QD
  14. CRANBERRY [Concomitant]
     Dosage: UNK, QD
  15. RESTASIS [Concomitant]
     Dosage: UNK, QD
     Route: 047
  16. BETAMETHASONE [Concomitant]
     Indication: ARTHROPOD BITE
     Dosage: UNK, PRN
     Route: 061
     Dates: start: 201305

REACTIONS (10)
  - Tibia fracture [Recovered/Resolved]
  - Fall [Unknown]
  - Bone density decreased [Unknown]
  - Scoliosis [Unknown]
  - Dizziness [Unknown]
  - Headache [Unknown]
  - Nervousness [Unknown]
  - Stress [Unknown]
  - Decreased appetite [Unknown]
  - Muscle spasms [Unknown]
